FAERS Safety Report 11473673 (Version 1)
Quarter: 2015Q3

REPORT INFORMATION
  Report Type: Spontaneous
  Country: None (occurrence: None)
  Receive Date: 20150908
  Receipt Date: 20150908
  Transmission Date: 20151125
  Serious: Yes (Disabling)
  Sender: FDA-Public Use
  Company Number: None

PATIENT
  Age: 25 Year
  Sex: Male
  Weight: 70 kg

DRUGS (1)
  1. PROPECIA [Suspect]
     Active Substance: FINASTERIDE
     Indication: ALOPECIA
     Dosage: 1 PILL
     Route: 048
     Dates: start: 20070307, end: 20150314

REACTIONS (12)
  - Anhedonia [None]
  - Dysarthria [None]
  - Body temperature decreased [None]
  - Cognitive disorder [None]
  - Memory impairment [None]
  - Erectile dysfunction [None]
  - Feeling abnormal [None]
  - Depression [None]
  - Emotional disorder [None]
  - Quality of life decreased [None]
  - Headache [None]
  - Libido decreased [None]
